FAERS Safety Report 11688897 (Version 4)
Quarter: 2016Q1

REPORT INFORMATION
  Report Type: Report from Study
  Country: DE (occurrence: DE)
  Receive Date: 20151102
  Receipt Date: 20160218
  Transmission Date: 20160525
  Serious: Yes (Other)
  Sender: FDA-Public Use
  Company Number: DE-ROCHE-1653374

PATIENT
  Age: 60 Year
  Sex: Female
  Weight: 45 kg

DRUGS (3)
  1. ESBRIET [Suspect]
     Active Substance: PIRFENIDONE
     Indication: ALVEOLITIS ALLERGIC
  2. ESBRIET [Suspect]
     Active Substance: PIRFENIDONE
     Indication: IDIOPATHIC PULMONARY FIBROSIS
     Dosage: 3 CAPSULES
     Route: 048
     Dates: start: 20150306, end: 20160201
  3. PREDNISOLON [Concomitant]
     Active Substance: PREDNISOLONE
     Indication: ALVEOLITIS ALLERGIC
     Route: 048

REACTIONS (7)
  - Weight decreased [Unknown]
  - Dyspnoea [Unknown]
  - Drug ineffective [Unknown]
  - Off label use [Unknown]
  - Decreased appetite [Unknown]
  - General physical health deterioration [Unknown]
  - Haematochezia [Unknown]

NARRATIVE: CASE EVENT DATE: 20150702
